FAERS Safety Report 18968991 (Version 2)
Quarter: 2021Q1

REPORT INFORMATION
  Report Type: Spontaneous
  Country: BE (occurrence: BE)
  Receive Date: 20210304
  Receipt Date: 20210317
  Transmission Date: 20210420
  Serious: Yes (Life-Threatening, Hospitalization)
  Sender: FDA-Public Use
  Company Number: BE-PFIZER INC-2021208401

PATIENT
  Age: 22 Year
  Sex: Female
  Weight: 61 kg

DRUGS (9)
  1. TRAUMEEL [Concomitant]
     Indication: COMPLEX REGIONAL PAIN SYNDROME
  2. DAFALGAN [Concomitant]
     Active Substance: ACETAMINOPHEN
     Indication: COMPLEX REGIONAL PAIN SYNDROME
  3. LYSOMUCIL [Concomitant]
     Active Substance: ACETYLCYSTEINE
     Indication: COMPLEX REGIONAL PAIN SYNDROME
  4. LYRICA [Suspect]
     Active Substance: PREGABALIN
     Indication: NEURALGIA
     Dosage: 25 MG, 1X/DAY IN THE EVENING (FROM D1)
     Route: 048
  5. LYRICA [Suspect]
     Active Substance: PREGABALIN
     Dosage: 50 MG, 1X/DAY IN THE EVENING AT 20:00H (ON D5)
     Route: 048
  6. PANTOMED [PANTOPRAZOLE SODIUM SESQUIHYDRATE] [Concomitant]
     Active Substance: PANTOPRAZOLE SODIUM
     Indication: PROPHYLAXIS
     Dosage: UNK
  7. MOBILITY [Concomitant]
     Active Substance: CAMPHOR OIL\CAPSICUM OLEORESIN\MENTHOL\METHYL SALICYLATE
     Indication: COMPLEX REGIONAL PAIN SYNDROME
     Dosage: UNK
  8. MEDROL [METHYLPREDNISOLONE ACETATE] [Concomitant]
     Active Substance: METHYLPREDNISOLONE ACETATE
     Indication: PAIN
     Dosage: 32 MG
  9. VITAMIN C [Concomitant]
     Active Substance: ASCORBIC ACID
     Indication: COMPLEX REGIONAL PAIN SYNDROME

REACTIONS (2)
  - Respiratory distress [Recovering/Resolving]
  - Anaphylactic shock [Recovering/Resolving]
